FAERS Safety Report 7430370-1 (Version None)
Quarter: 2011Q2

REPORT INFORMATION
  Report Type: 
  Country: None (occurrence: None)
  Receive Date: 20110421
  Receipt Date: 20110111
  Transmission Date: 20111010
  Serious: No
  Sender: FDA-Public Use
  Company Number: US-ASTRAZENECA-2011SE02072

PATIENT
  Age: 59 Year
  Sex: Female

DRUGS (2)
  1. TOPROL-XL [Suspect]
     Indication: HYPERTENSION
     Route: 048
     Dates: start: 20030101
  2. TOPROL-XL [Suspect]
     Route: 048
     Dates: start: 20100101, end: 20110104

REACTIONS (2)
  - HYPERSENSITIVITY [None]
  - URTICARIA [None]
